FAERS Safety Report 5267852-7 (Version None)
Quarter: 2007Q1

REPORT INFORMATION
  Report Type: 
  Country: None (occurrence: None)
  Receive Date: 20061213
  Receipt Date: 20050801
  Transmission Date: 20070707
  Serious: Yes (Other)
  Sender: FDA-Public Use
  Company Number: 2005UW11297

PATIENT
  Age: 77 Year
  Sex: Male
  Weight: 70.306 kg

DRUGS (4)
  1. IRESSA [Suspect]
     Indication: LUNG NEOPLASM MALIGNANT
     Dates: start: 20040101
  2. AMOXICILLIN [Concomitant]
  3. VITAMINS [Concomitant]
  4. LORAZEPAM [Concomitant]

REACTIONS (1)
  - SKIN WRINKLING [None]
